FAERS Safety Report 6667377-8 (Version None)
Quarter: 2010Q2

REPORT INFORMATION
  Report Type: 
  Country: None (occurrence: None)
  Receive Date: 20100405
  Receipt Date: 20100324
  Transmission Date: 20101027
  Serious: Yes (Hospitalization)
  Sender: FDA-Public Use
  Company Number: PHHY2010VE19031

PATIENT
  Sex: Female

DRUGS (13)
  1. DIOVAN [Suspect]
     Indication: HYPERTENSION
     Dosage: 320 MG, QD
     Route: 048
     Dates: end: 20091001
  2. ZIAC [Concomitant]
     Indication: HYPERTENSION
     Dosage: UNK,ONCE A DAY
     Route: 048
     Dates: start: 20091001
  3. SOMAZINA [Concomitant]
     Indication: NERVOUS SYSTEM DISORDER
     Dosage: 500 MG, ONCE/SINGLE
     Route: 048
     Dates: start: 20050101
  4. NEURONTIN [Concomitant]
     Indication: NERVOUS SYSTEM DISORDER
     Dosage: 300 MG, ONCE/SINGLE
     Route: 048
  5. FLUOXETINE [Concomitant]
     Indication: NERVOUSNESS
     Dosage: 20 MG, PRN
     Route: 048
     Dates: start: 20090501
  6. TAFIL [Concomitant]
     Indication: SLEEP DISORDER
     Dosage: 0.5 MG, ONCE/SINGLE
     Route: 048
     Dates: start: 20080101
  7. AMIODARONE HCL [Concomitant]
     Indication: TACHYCARDIA
     Dosage: UNK, THRICE A WEEK
     Dates: start: 20090101
  8. PLAVIX [Concomitant]
     Dosage: 75 MG, ONCE/SINGLE
     Route: 048
     Dates: start: 20090101
  9. FLAXOL [Concomitant]
     Dosage: UNK, ONCE A DAY
     Route: 048
     Dates: start: 20100101
  10. CENTRUM [Concomitant]
     Dosage: UNK,ONCE A DAY
     Route: 048
     Dates: start: 20100101
  11. DIOVENOR [Concomitant]
     Dosage: UNK, ONCE A DAY
     Route: 048
  12. CALCIUM CITRATE W/COLECALCIFEROL [Concomitant]
     Indication: OSTEOPOROSIS
     Dosage: 315 MG/200 IU, ONCE A DAY
  13. COLLAGEN [Concomitant]
     Dosage: UNK

REACTIONS (1)
  - HYPERTENSIVE CRISIS [None]
